FAERS Safety Report 7680962-X (Version None)
Quarter: 2011Q3

REPORT INFORMATION
  Report Type: 
  Country: None (occurrence: None)
  Receive Date: 20110812
  Receipt Date: 20110728
  Transmission Date: 20111222
  Serious: Yes (Other)
  Sender: FDA-Public Use
  Company Number: GB-BAYER-2011-066826

PATIENT
  Age: 79 Year
  Sex: Male
  Weight: 92 kg

DRUGS (8)
  1. HYDROXYUREA [Concomitant]
  2. ASPIRIN [Concomitant]
  3. FENBID [Concomitant]
  4. CO-CODAMOL EFF. [Suspect]
  5. BISOPROLOL FUMARATE [Concomitant]
  6. RAMIPRIL [Concomitant]
  7. ALLOPURINOL [Concomitant]
  8. QVAR 40 [Concomitant]

REACTIONS (1)
  - CONSTIPATION [None]
